FAERS Safety Report 16021903 (Version 1)
Quarter: 2019Q2

REPORT INFORMATION
  Report Type: Spontaneous
  Country: US (occurrence: US)
  Receive Date: 20190301
  Receipt Date: 20190301
  Transmission Date: 20190711
  Serious: No
  Sender: FDA-Public Use
  Company Number: None

PATIENT
  Age: 61 Year
  Sex: Female
  Weight: 66.15 kg

DRUGS (8)
  1. DEPLIN [Concomitant]
     Active Substance: LEVOMEFOLATE CALCIUM
  2. ARMOUR THYROID [Concomitant]
     Active Substance: THYROID, PORCINE
  3. LASIX [Concomitant]
     Active Substance: FUROSEMIDE
  4. POTASSIUM [Concomitant]
     Active Substance: POTASSIUM
  5. ROBAXIN [Concomitant]
     Active Substance: METHOCARBAMOL
  6. LYRICA [Suspect]
     Active Substance: PREGABALIN
     Indication: FIBROMYALGIA
     Dosage: ?          QUANTITY:1 CAPSULE(S);?
     Route: 048
  7. DYAZIDE [Concomitant]
     Active Substance: HYDROCHLOROTHIAZIDE\TRIAMTERENE
  8. WELLBUTRIN [Concomitant]
     Active Substance: BUPROPION HYDROCHLORIDE

REACTIONS (11)
  - Serotonin syndrome [None]
  - Depression [None]
  - Withdrawal syndrome [None]
  - Mood altered [None]
  - Headache [None]
  - Pruritus [None]
  - Hot flush [None]
  - Anxiety [None]
  - Drug ineffective [None]
  - Tachycardia [None]
  - Nausea [None]
